FAERS Safety Report 17591266 (Version 4)
Quarter: 2020Q2

REPORT INFORMATION
  Report Type: Spontaneous
  Country: US (occurrence: US)
  Receive Date: 20200327
  Receipt Date: 20200618
  Transmission Date: 20200713
  Serious: No
  Sender: FDA-Public Use
  Company Number: US-PFIZER INC-2020126291

PATIENT
  Age: 60 Year
  Sex: Female
  Weight: 72.56 kg

DRUGS (24)
  1. FOLIC ACID. [Concomitant]
     Active Substance: FOLIC ACID
     Dosage: 800 MG, DAILY
     Dates: start: 2008
  2. HYDRODIURIL [Concomitant]
     Active Substance: HYDROCHLOROTHIAZIDE
     Dosage: 12.5 MG, DAILY
  3. TOPAMAX [Concomitant]
     Active Substance: TOPIRAMATE
     Dosage: 50 MG, DAILY [25 MG, 2 DAILY]
     Dates: start: 2015
  4. BLACK COHOSH [CIMICIFUGA RACEMOSA] [Concomitant]
     Dosage: 540 MG, DAILY
  5. MSM [METHYLSULFONYLMETHANE] [Concomitant]
     Dosage: 1500, 2X/DAY
  6. NEUROTIN [GABAPENTIN] [Concomitant]
     Dosage: 200 MG, 2X/DAY (2XDAILY)
  7. NORCO [Concomitant]
     Active Substance: ACETAMINOPHEN\HYDROCODONE BITARTRATE
     Dosage: 7.5 MG, AS NEEDED
  8. ZOCOR [Concomitant]
     Active Substance: SIMVASTATIN
     Dosage: 20 MG, DAILY [DAILY P.M.]
  9. DESYREL [Concomitant]
     Active Substance: TRAZODONE HYDROCHLORIDE
     Dosage: 2 DF, DAILY (2 AT BED)
     Dates: start: 2018
  10. PREDNISONE. [Concomitant]
     Active Substance: PREDNISONE
     Dosage: 3 MG, DAILY
  11. SYMBICORT [Concomitant]
     Active Substance: BUDESONIDE\FORMOTEROL FUMARATE DIHYDRATE
     Dosage: UNK (80/4.5, 2 AT BED)
  12. TURMERIC [CURCUMA LONGA] [Concomitant]
     Active Substance: HERBALS\TURMERIC
     Dosage: UNK, 2X/DAY (DOSE REPORTED AS 1000)
     Dates: start: 2018
  13. BACTRIM [Concomitant]
     Active Substance: SULFAMETHOXAZOLE\TRIMETHOPRIM
     Dosage: 1600 MG, DAILY [800 MG, 2 DAILY]
     Dates: start: 2014
  14. BIOTIN [Concomitant]
     Active Substance: BIOTIN
     Dosage: 5000 MG, DAILY
  15. CALCIUM 600 + VITAMIN D [Concomitant]
     Active Substance: CALCIUM\VITAMIN D
     Dosage: UNK [MULTI/VIT D/CALCIUM, AMOUNT: 600 MG, HOW OFTEN: DAILY]
  16. ASPIRIN 81 [Concomitant]
     Active Substance: ASPIRIN
     Dosage: 81 MG, DAILY (P.M.)
  17. AMLODIPINE BESILATE [Concomitant]
     Active Substance: AMLODIPINE BESYLATE
     Dosage: 5 MG, DAILY
  18. MILK THISTLE [Concomitant]
     Active Substance: DIETARY SUPPLEMENT\HERBALS\MILK THISTLE
     Dosage: UNK
  19. NEUROTIN [GABAPENTIN] [Concomitant]
     Dosage: 300 MG, 2X/DAY (2XDAILY)
  20. PROTONIX [Concomitant]
     Active Substance: PANTOPRAZOLE SODIUM
     Dosage: 40 MG, DAILY
  21. VITAMIN B12 [Concomitant]
     Active Substance: CYANOCOBALAMIN
     Dosage: UNK, MONTHLY (1 MONTHLY)
     Dates: end: 202004
  22. XELJANZ XR [Suspect]
     Active Substance: TOFACITINIB CITRATE
     Indication: RHEUMATOID ARTHRITIS
     Dosage: 11 MG, 1X/DAY
     Dates: start: 201911
  23. ATENOLOL. [Concomitant]
     Active Substance: ATENOLOL
     Dosage: 50 MG, DAILY
  24. GARLIC (DEODORIZED) [Concomitant]
     Dosage: 1000 MG, 2X/DAY
     Dates: start: 2019

REACTIONS (2)
  - Seasonal allergy [Not Recovered/Not Resolved]
  - Vision blurred [Not Recovered/Not Resolved]

NARRATIVE: CASE EVENT DATE: 202001
